FAERS Safety Report 22154560 (Version 1)
Quarter: 2023Q1

REPORT INFORMATION
  Report Type: Spontaneous
  Country: US (occurrence: US)
  Receive Date: 20230330
  Receipt Date: 20230330
  Transmission Date: 20230417
  Serious: Yes (Other)
  Sender: FDA-Public Use
  Company Number: US-002147023-NVSC2023US071353

PATIENT
  Age: 15 Year
  Sex: Female

DRUGS (3)
  1. JADENU [Suspect]
     Active Substance: DEFERASIROX
     Indication: Serum ferritin increased
     Dosage: 19 MG/KG, QD
     Route: 065
     Dates: start: 2016
  2. JADENU [Suspect]
     Active Substance: DEFERASIROX
     Indication: Sickle cell disease
     Dosage: 24 MG/KG, QD
     Route: 065
  3. HYDROXYUREA [Concomitant]
     Active Substance: HYDROXYUREA
     Indication: Product used for unknown indication
     Dosage: UNK
     Route: 065

REACTIONS (2)
  - Hyperammonaemia [Unknown]
  - Liver injury [Unknown]
